FAERS Safety Report 10210224 (Version 1)
Quarter: 2014Q2

REPORT INFORMATION
  Report Type: Spontaneous
  Country: US (occurrence: None)
  Receive Date: 20140528
  Receipt Date: 20140528
  Transmission Date: 20141212
  Serious: Yes (Life-Threatening, Hospitalization)
  Sender: FDA-Public Use
  Company Number: IPC201405-000237

PATIENT
  Age: 65 Year
  Sex: Female
  Weight: 57 kg

DRUGS (6)
  1. HYDROCHLOROTHIAZIDE [Suspect]
     Dosage: 25 MG DAILY IN THE MORNING
  2. LISINOPRIL [Suspect]
     Dosage: 20 MG DAILY IN MORNING
  3. CARVEDILOL [Suspect]
     Dosage: 25 MG TWICE DAILY
  4. PRAVASTATIN (PRAVASTATIN) PRAVASTATIN) [Concomitant]
  5. BUPROPION (BUPROPION) (BUPROPION) [Concomitant]
  6. ASPIRIN (ACETYL SALICYLIC ACID) (ACETYL SALICYLIC ACID) [Concomitant]

REACTIONS (14)
  - Procedural hypotension [None]
  - Cardiac arrest [None]
  - Procedural complication [None]
  - Atrioventricular block complete [None]
  - Tricuspid valve incompetence [None]
  - Mitral valve incompetence [None]
  - Haemoglobin decreased [None]
  - Treatment noncompliance [None]
  - Blood pressure systolic increased [None]
  - Drug administration error [None]
  - Blood potassium decreased [None]
  - Blood creatinine increased [None]
  - Troponin I increased [None]
  - Blood creatine phosphokinase MB increased [None]
